FAERS Safety Report 20821321 (Version 1)
Quarter: 2022Q2

REPORT INFORMATION
  Report Type: Spontaneous
  Country: US (occurrence: US)
  Receive Date: 20220512
  Receipt Date: 20220512
  Transmission Date: 20220720
  Serious: No
  Sender: FDA-Public Use
  Company Number: US-PFIZER INC-202200322510

PATIENT
  Age: 9 Year
  Sex: Female

DRUGS (1)
  1. XELJANZ [Suspect]
     Active Substance: TOFACITINIB CITRATE
     Indication: Juvenile idiopathic arthritis
     Dosage: 5 MG (TAKE 1 (5MG) TABLET BY MOUTH IN THE MORNING AND TAKE ONE-HALF (1/2) TABLET IN THE EVENING.)
     Route: 048
     Dates: start: 20210902

REACTIONS (6)
  - Off label use [Unknown]
  - Off label use [Unknown]
  - Off label use [Unknown]
  - COVID-19 [Recovering/Resolving]
  - Influenza [Recovering/Resolving]
  - Viral infection [Unknown]

NARRATIVE: CASE EVENT DATE: 20210902
